FAERS Safety Report 25517802 (Version 2)
Quarter: 2025Q3

REPORT INFORMATION
  Report Type: Spontaneous
  Country: NZ (occurrence: NZ)
  Receive Date: 20250704
  Receipt Date: 20250731
  Transmission Date: 20251020
  Serious: Yes (Disabling)
  Sender: ALEXION PHARMACEUTICALS
  Company Number: NZ-AstraZeneca-CH-00896800A

PATIENT
  Age: 46 Year
  Sex: Male
  Weight: 74 kg

DRUGS (2)
  1. FASENRA [Suspect]
     Active Substance: BENRALIZUMAB
     Indication: Asthma
     Dosage: 30 MILLIGRAM, Q8W
     Dates: start: 20231011
  2. FASENRA [Suspect]
     Active Substance: BENRALIZUMAB

REACTIONS (12)
  - Tendon disorder [Not Recovered/Not Resolved]
  - Bursitis [Not Recovered/Not Resolved]
  - Tendon injury [Unknown]
  - Discomfort [Unknown]
  - Rash [Unknown]
  - Hypersensitivity [Unknown]
  - Stress [Unknown]
  - Bursal fluid accumulation [Unknown]
  - Arthropathy [Unknown]
  - Arthralgia [Recovered/Resolved]
  - Muscle strain [Unknown]
  - Impaired healing [Unknown]

NARRATIVE: CASE EVENT DATE: 20241010
